FAERS Safety Report 10485262 (Version 2)
Quarter: 2014Q4

REPORT INFORMATION
  Report Type: Spontaneous
  Country: DE (occurrence: CH)
  Receive Date: 20140930
  Receipt Date: 20141105
  Transmission Date: 20150528
  Serious: No
  Sender: FDA-Public Use
  Company Number: CH-FRI-1000071108

PATIENT
  Sex: Female

DRUGS (10)
  1. RISPERDAL [Suspect]
     Active Substance: RISPERIDONE
     Dosage: 0.5 MG
     Route: 048
     Dates: start: 20140616, end: 20140703
  2. RISPERDAL [Suspect]
     Active Substance: RISPERIDONE
     Dosage: 1 MG
     Route: 048
     Dates: start: 20140704
  3. REMERON [Concomitant]
     Active Substance: MIRTAZAPINE
     Dosage: 30 MG
     Dates: start: 20140402
  4. NITRODERM [Concomitant]
     Active Substance: NITROGLYCERIN
     Route: 062
     Dates: start: 20140526
  5. MEMANTINE [Suspect]
     Active Substance: MEMANTINE
     Indication: DEMENTIA ALZHEIMER^S TYPE
     Dosage: 5 MG
     Route: 048
     Dates: start: 20140710, end: 20140722
  6. ELTROXIN [Concomitant]
     Active Substance: LEVOTHYROXINE
     Dosage: 0.05 MG
     Dates: start: 20140526
  7. TRIATEC [Concomitant]
     Active Substance: RAMIPRIL
     Dosage: 10 MG
     Dates: start: 20140402
  8. ASPIRIN. [Concomitant]
     Active Substance: ASPIRIN
     Dosage: 100 MG
     Dates: start: 20140402
  9. PANTOZOL [Concomitant]
     Active Substance: PANTOPRAZOLE SODIUM
     Dates: start: 20140626
  10. CYMBALTA [Concomitant]
     Active Substance: DULOXETINE HYDROCHLORIDE
     Dosage: 60 MG
     Dates: start: 20140602

REACTIONS (1)
  - Depression [Recovered/Resolved]

NARRATIVE: CASE EVENT DATE: 20140717
